FAERS Safety Report 23603890 (Version 1)
Quarter: 2024Q1

REPORT INFORMATION
  Report Type: Spontaneous
  Country: CN (occurrence: None)
  Receive Date: 20240307
  Receipt Date: 20240307
  Transmission Date: 20240410
  Serious: Yes (Hospitalization)
  Sender: FDA-Public Use
  Company Number: CN-ROCHE-3521585

PATIENT
  Age: 37 Year
  Sex: Female
  Weight: 62 kg

DRUGS (3)
  1. DOCETAXEL [Suspect]
     Active Substance: DOCETAXEL\DOCETAXEL ANHYDROUS
     Indication: Breast cancer
     Route: 041
     Dates: start: 20240228, end: 20240228
  2. PERJETA [Suspect]
     Active Substance: PERTUZUMAB
     Indication: Breast cancer
     Dosage: LYOPHILIZED POWDER
     Route: 041
     Dates: start: 20240228, end: 20240228
  3. HERCEPTIN [Suspect]
     Active Substance: TRASTUZUMAB
     Indication: Breast cancer
     Dosage: LYOPHILIZED POWDER
     Route: 041
     Dates: start: 20240228, end: 20240228

REACTIONS (1)
  - Myelosuppression [Not Recovered/Not Resolved]

NARRATIVE: CASE EVENT DATE: 20240229
